FAERS Safety Report 9934998 (Version 1)
Quarter: 2014Q1

REPORT INFORMATION
  Report Type: Spontaneous
  Country: US (occurrence: US)
  Receive Date: 20140228
  Receipt Date: 20140228
  Transmission Date: 20141002
  Serious: No
  Sender: FDA-Public Use
  Company Number: US-BAYER-2014-032084

PATIENT
  Age: 95 Year
  Sex: Female
  Weight: 48 kg

DRUGS (5)
  1. ALEVE TABLET [Suspect]
     Indication: BACK PAIN
     Dosage: 2 DF, QD
     Route: 048
     Dates: start: 201402, end: 20140226
  2. BAYER ASPIRIN REGIMEN ADULT LOW STRENGTH [Concomitant]
  3. COUMADIN [Concomitant]
  4. DIGOXIN [Concomitant]
  5. DILTIAZEM [Concomitant]

REACTIONS (2)
  - Drug ineffective [None]
  - Incorrect drug administration duration [None]
